FAERS Safety Report 18533314 (Version 1)
Quarter: 2020Q4

REPORT INFORMATION
  Report Type: Spontaneous
  Country: US (occurrence: US)
  Receive Date: 20201120
  Receipt Date: 20201120
  Transmission Date: 20210114
  Serious: Yes (Other)
  Sender: FDA-Public Use
  Company Number: None

PATIENT
  Age: 94 Year
  Sex: Male

DRUGS (9)
  1. HYDROCHLOROTHIAZIDE 12.5MG [Concomitant]
     Active Substance: HYDROCHLOROTHIAZIDE
  2. SIMVASTATIN 40MG [Concomitant]
     Active Substance: SIMVASTATIN
  3. FAMOTIDINE 20MG [Concomitant]
     Active Substance: FAMOTIDINE
  4. LOSARTAN 50MG [Concomitant]
     Active Substance: LOSARTAN
  5. CARVEDILOL 12.5MG [Concomitant]
     Active Substance: CARVEDILOL
  6. LACTULOSE ORAL SOLUTION [Suspect]
     Active Substance: LACTULOSE
     Indication: CONSTIPATION
     Route: 048
     Dates: start: 20200816, end: 20201118
  7. TAMSULOSINE 0.4MG [Concomitant]
  8. PAROXETINE 20MG [Concomitant]
     Active Substance: PAROXETINE
  9. FINASTERIDE 5MG [Concomitant]
     Active Substance: FINASTERIDE

REACTIONS (3)
  - Product formulation issue [None]
  - Product colour issue [None]
  - Drug effect faster than expected [None]

NARRATIVE: CASE EVENT DATE: 20201118
